FAERS Safety Report 5126429-4 (Version None)
Quarter: 2006Q4

REPORT INFORMATION
  Report Type: 
  Country: None (occurrence: None)
  Receive Date: 20061010
  Receipt Date: 20060925
  Transmission Date: 20070319
  Serious: Yes (Hospitalization)
  Sender: FDA-Public Use
  Company Number: CIP05003057

PATIENT
  Age: 52 Year
  Sex: Female
  Weight: 117.5 kg

DRUGS (11)
  1. RISEDRONATE (RISEDRONATE SODIUM) TABLET, 30MG [Suspect]
     Indication: OSTEITIS DEFORMANS
     Dosage: 30 MG, DAILY, ORAL
     Route: 048
     Dates: start: 20020914, end: 20020924
  2. RISEDRONATE(RISEDRONATE SODIUM) TABLET, 5 MG [Suspect]
     Dosage: SEE IMAGE
     Route: 048
     Dates: start: 20030911
  3. RISEDRONATE(RISEDRONATE SODIUM) TABLET, 5 MG [Suspect]
     Dosage: SEE IMAGE
     Route: 048
     Dates: start: 20030808
  4. RISEDRONATE(RISEDRONATE SODIUM) TABLET, 5 MG [Suspect]
     Dosage: SEE IMAGE
     Route: 048
     Dates: start: 20030922
  5. RISEDRONATE(RISEDRONATE SODIUM) TABLET, 5 MG [Suspect]
     Dosage: SEE IMAGE
     Route: 048
     Dates: start: 20041014
  6. ALBUTEROL [Concomitant]
  7. FUROSEMIDE [Concomitant]
  8. AMLODIPINE [Concomitant]
  9. IBUPROFEN [Concomitant]
  10. PAROXETINE [Concomitant]
  11. OSCAL 500-D (COLECALCIFEROL, CALCIUM) [Concomitant]

REACTIONS (13)
  - BLOOD ALKALINE PHOSPHATASE INCREASED [None]
  - BLOOD PARATHYROID HORMONE INCREASED [None]
  - CALCIUM IONISED DECREASED [None]
  - DYSARTHRIA [None]
  - HUNGRY BONE SYNDROME [None]
  - HYPOCALCAEMIA [None]
  - MENTAL STATUS CHANGES [None]
  - MYOCLONUS [None]
  - PROCOLLAGEN TYPE I C-TERMINAL PROPEPTIDE INCREASED [None]
  - SERUM PROCOLLAGEN TYPE I N-TERMINAL PROPEPTIDE INCREASED [None]
  - VITAMIN D DECREASED [None]
  - VITAMIN D DEFICIENCY [None]
  - VITAMIN D INCREASED [None]
